FAERS Safety Report 4501219-1 (Version None)
Quarter: 2004Q4

REPORT INFORMATION
  Report Type: 
  Country: None (occurrence: None)
  Receive Date: 20041115
  Receipt Date: 20040903
  Transmission Date: 20050328
  Serious: Yes (Hospitalization)
  Sender: FDA-Public Use
  Company Number: PHBS2004JP11793

PATIENT
  Age: 19 Year
  Sex: Male
  Weight: 58 kg

DRUGS (3)
  1. NEORAL [Suspect]
     Indication: STEM CELL TRANSPLANT
     Dosage: 150 MG/DAY
     Route: 048
     Dates: start: 20040701, end: 20040902
  2. NEORAL [Suspect]
     Dosage: 100 MG/DAY
     Route: 048
     Dates: start: 20040903
  3. SANDIMMUNE [Concomitant]
     Indication: STEM CELL TRANSPLANT
     Dosage: 207- 150 - 100 - 75 MG/DAY
     Route: 042
     Dates: start: 20040526, end: 20040630

REACTIONS (9)
  - ANOREXIA [None]
  - C-REACTIVE PROTEIN INCREASED [None]
  - DECREASED APPETITE [None]
  - LARYNGOPHARYNGITIS [None]
  - LIVER DISORDER [None]
  - PHARYNGOLARYNGEAL PAIN [None]
  - PYREXIA [None]
  - UPPER RESPIRATORY TRACT INFLAMMATION [None]
  - WHITE BLOOD CELL COUNT DECREASED [None]
